FAERS Safety Report 24100926 (Version 1)
Quarter: 2024Q3

REPORT INFORMATION
  Report Type: Spontaneous
  Country: US (occurrence: US)
  Receive Date: 20240717
  Receipt Date: 20240717
  Transmission Date: 20241016
  Serious: No
  Sender: NOVO NORDISK
  Company Number: US-NOVOPROD-1224514

PATIENT
  Sex: Female

DRUGS (1)
  1. OZEMPIC [Suspect]
     Active Substance: SEMAGLUTIDE
     Indication: Type 2 diabetes mellitus
     Dosage: 1 MG (0.5 MG TWICE TO EQUAL 1MG DOSE)
     Route: 058

REACTIONS (2)
  - Increased appetite [Not Recovered/Not Resolved]
  - Intentional product misuse [Not Recovered/Not Resolved]
